FAERS Safety Report 15287871 (Version 1)
Quarter: 2018Q3

REPORT INFORMATION
  Report Type: Spontaneous
  Country: US (occurrence: US)
  Receive Date: 20180802
  Receipt Date: 20180802
  Transmission Date: 20181010
  Serious: Yes (Other)
  Sender: FDA-Public Use
  Company Number: None

PATIENT
  Age: 54 Year
  Sex: Female
  Weight: 72 kg

DRUGS (8)
  1. PERCOCET [Concomitant]
     Active Substance: ACETAMINOPHEN\OXYCODONE HYDROCHLORIDE
  2. FENTANYL TRANSDERMAL SYSTEM [Suspect]
     Active Substance: FENTANYL
     Indication: FIBROMYALGIA
     Dosage: ?          QUANTITY:5 PATCH(ES);OTHER FREQUENCY:EVERY OTHER DAY;?
     Route: 061
     Dates: start: 20180608, end: 20180802
  3. FOLIC ACID. [Concomitant]
     Active Substance: FOLIC ACID
  4. NEXIUM [Concomitant]
     Active Substance: ESOMEPRAZOLE MAGNESIUM
  5. METHATREXATE BIOLOGIC SHOT MONTHLY [Concomitant]
  6. PLAVIX [Concomitant]
     Active Substance: CLOPIDOGREL BISULFATE
  7. FENTANYL TRANSDERMAL SYSTEM [Suspect]
     Active Substance: FENTANYL
     Indication: RHEUMATOID ARTHRITIS
     Dosage: ?          QUANTITY:5 PATCH(ES);OTHER FREQUENCY:EVERY OTHER DAY;?
     Route: 061
     Dates: start: 20180608, end: 20180802
  8. BIOTIN [Concomitant]
     Active Substance: BIOTIN

REACTIONS (4)
  - Product physical issue [None]
  - Withdrawal syndrome [None]
  - Product quality issue [None]
  - Drug ineffective [None]

NARRATIVE: CASE EVENT DATE: 20180802
